FAERS Safety Report 8871428 (Version 3)
Quarter: 2014Q2

REPORT INFORMATION
  Report Type: Report from Study
  Country: BR (occurrence: BR)
  Receive Date: 20121029
  Receipt Date: 20140521
  Transmission Date: 20141212
  Serious: Yes (Hospitalization)
  Sender: FDA-Public Use
  Company Number: BR-US-EMD SERONO, INC.-7147650

PATIENT
  Age: 43 Year
  Sex: Female

DRUGS (13)
  1. REBIF [Suspect]
     Indication: RELAPSING-REMITTING MULTIPLE SCLEROSIS
     Dates: start: 200708
  2. SOLU-MEDROL [Suspect]
     Indication: MULTIPLE SCLEROSIS RELAPSE
  3. BACLOFEN [Concomitant]
     Indication: PRODUCT USED FOR UNKNOWN INDICATION
  4. GABAPENTINE [Concomitant]
     Indication: PRODUCT USED FOR UNKNOWN INDICATION
  5. HYDROXYCHLOROQUINE SULFATE [Concomitant]
     Indication: PRODUCT USED FOR UNKNOWN INDICATION
  6. MAREVAN [Concomitant]
     Indication: PRODUCT USED FOR UNKNOWN INDICATION
  7. ENALAPRIL [Concomitant]
     Indication: PRODUCT USED FOR UNKNOWN INDICATION
  8. AMPLICTIL                          /00011901/ [Concomitant]
     Indication: PRODUCT USED FOR UNKNOWN INDICATION
  9. TYLENOL                            /00020001/ [Concomitant]
     Indication: PRODUCT USED FOR UNKNOWN INDICATION
  10. DIPYRONE [Concomitant]
     Indication: PRODUCT USED FOR UNKNOWN INDICATION
  11. NARAMIG [Concomitant]
     Indication: PRODUCT USED FOR UNKNOWN INDICATION
  12. TRAZODONE [Concomitant]
     Indication: PRODUCT USED FOR UNKNOWN INDICATION
  13. SERTRALINE [Concomitant]
     Indication: PRODUCT USED FOR UNKNOWN INDICATION

REACTIONS (6)
  - Cerebral thrombosis [Recovered/Resolved]
  - Convulsion [Recovering/Resolving]
  - Multiple sclerosis relapse [Recovered/Resolved]
  - Vomiting [Unknown]
  - Blood pressure increased [Unknown]
  - Headache [Recovering/Resolving]
